FAERS Safety Report 4309843-6 (Version None)
Quarter: 2004Q1

REPORT INFORMATION
  Report Type: 
  Country: None (occurrence: None)
  Receive Date: 20040227
  Receipt Date: 20040123
  Transmission Date: 20041129
  Serious: No
  Sender: FDA-Public Use
  Company Number: MPS1-10160

PATIENT
  Age: 2 Year
  Sex: Female
  Weight: 10.7 kg

DRUGS (1)
  1. ALDURAZYME [Suspect]
     Indication: MUCOPOLYSACCHARIDOSIS I
     Dosage: 0.58 MG/KG Q2WKS IV
     Route: 042
     Dates: start: 20031026

REACTIONS (1)
  - VOMITING [None]
